FAERS Safety Report 8058073-3 (Version None)
Quarter: 2012Q1

REPORT INFORMATION
  Report Type: 
  Country: None (occurrence: None)
  Receive Date: 20120113
  Receipt Date: 20120105
  Transmission Date: 20120608
  Serious: Yes (Hospitalization)
  Sender: FDA-Public Use
  Company Number: LTI2012A00005

PATIENT
  Age: 62 Year
  Sex: Male

DRUGS (13)
  1. LANSOPRAZOLE [Suspect]
     Dosage: ORAL (15 MG,AS REQUIRED)
     Route: 048
  2. ATENOLOL [Suspect]
     Dosage: ORAL
     Route: 048
  3. TANAKAN(GINKGO BILOBA EXTRAC. [Concomitant]
  4. ORENCIA [Suspect]
     Indication: RHEUMATOID ARTHRITIS
     Dosage: 750 MG INTRAVENOUS
     Route: 042
     Dates: start: 20080101, end: 20111017
  5. LAMALINE ( CAFFEINE, PARACETAMOL, ATROPA BELLADONNA EXTRACT, PAPAVER S [Suspect]
     Dosage: ORAL
     Route: 048
     Dates: start: 20110201
  6. ESCITALOPRAM [Suspect]
     Dosage: ORAL
     Route: 048
     Dates: start: 20110201, end: 20110601
  7. ESCITALOPRAM [Suspect]
     Dosage: ORAL
     Route: 048
     Dates: end: 20100401
  8. ETIOVEN(NAFTAZONE) [Concomitant]
  9. SPECIAFOLDINE(FOLIC ACID) [Concomitant]
  10. BIPERIDYS(DOMPERIDONE) [Concomitant]
  11. EZETIMIBE [Suspect]
     Dosage: ORAL
     Route: 048
  12. ALPRAZOLAM [Concomitant]
  13. LEGALON(SILYBUM MARIANUM) [Concomitant]

REACTIONS (6)
  - GLOMERULONEPHRITIS MEMBRANOUS [None]
  - DUODENITIS [None]
  - GASTRITIS [None]
  - RENAL CYST [None]
  - DIVERTICULUM OESOPHAGEAL [None]
  - OESOPHAGEAL DISORDER [None]
